FAERS Safety Report 10220613 (Version 1)
Quarter: 2014Q2

REPORT INFORMATION
  Report Type: Spontaneous
  Country: US (occurrence: None)
  Receive Date: 20140604
  Receipt Date: 20140604
  Transmission Date: 20141212
  Serious: Yes (Other)
  Sender: FDA-Public Use
  Company Number: 001742459A

PATIENT
  Sex: Female

DRUGS (1)
  1. MEANINGFUL BEAUTY SKIN BRIGHTENING DECOLLETE AND NECK TREATMENT WITH SPF 15 [Suspect]
     Dosage: ONCE DAILY DERMAL
     Dates: start: 20140510

REACTIONS (2)
  - Urticaria [None]
  - Anaphylactic shock [None]
